FAERS Safety Report 4272518-6 (Version None)
Quarter: 2004Q1

REPORT INFORMATION
  Report Type: 
  Country: None (occurrence: None)
  Receive Date: 20040114
  Receipt Date: 20040107
  Transmission Date: 20041129
  Serious: Yes (Hospitalization)
  Sender: FDA-Public Use
  Company Number: 200308229

PATIENT
  Age: 30 Year
  Sex: Male

DRUGS (2)
  1. ACETAMINOPHEN [Suspect]
     Dates: start: 20020118
  2. ALCOHOL [Concomitant]

REACTIONS (3)
  - ADVERSE EVENT [None]
  - BLOOD ALCOHOL INCREASED [None]
  - INTENTIONAL OVERDOSE [None]
